FAERS Safety Report 6213580-0 (Version None)
Quarter: 2009Q2

REPORT INFORMATION
  Report Type: 
  Country: None (occurrence: None)
  Receive Date: 20090601
  Receipt Date: 20090520
  Transmission Date: 20091009
  Serious: Yes (Hospitalization)
  Sender: FDA-Public Use
  Company Number: WAES 0812USA02711

PATIENT
  Age: 77 Year
  Sex: Male

DRUGS (17)
  1. CAP APREPITANT [Suspect]
     Indication: PROPHYLAXIS OF NAUSEA AND VOMITING
     Dosage: 125 MG/1X; 80 MG/1X; 80 MG/1X
     Route: 048
     Dates: start: 20081208, end: 20081208
  2. CAP APREPITANT [Suspect]
     Indication: PROPHYLAXIS OF NAUSEA AND VOMITING
     Dosage: 125 MG/1X; 80 MG/1X; 80 MG/1X
     Route: 048
     Dates: start: 20081209, end: 20081209
  3. CAP APREPITANT [Suspect]
     Indication: PROPHYLAXIS OF NAUSEA AND VOMITING
     Dosage: 125 MG/1X; 80 MG/1X; 80 MG/1X
     Route: 048
     Dates: start: 20081210, end: 20081210
  4. INJ PLACEBO (UNSPECIFIED) [Suspect]
     Indication: PROPHYLAXIS OF NAUSEA AND VOMITING
     Dates: start: 20081208, end: 20081208
  5. INJ PLACEBO (UNSPECIFIED) [Suspect]
     Indication: PROPHYLAXIS OF NAUSEA AND VOMITING
     Dates: start: 20081210, end: 20081210
  6. ONDANSETRON HCL [Suspect]
     Indication: PROPHYLAXIS OF NAUSEA AND VOMITING
     Dosage: 50 ML/1X
     Route: 042
     Dates: start: 20081208, end: 20081208
  7. DEXAMETHASONE [Suspect]
     Indication: PROPHYLAXIS OF NAUSEA AND VOMITING
     Dosage: 12 MG/1X
     Route: 048
     Dates: start: 20081208, end: 20081208
  8. GEMCITABINE [Suspect]
     Indication: LUNG NEOPLASM MALIGNANT
     Dosage: 2300 MG/DAILY
     Route: 042
     Dates: start: 20081208
  9. CISPLATIN [Suspect]
     Indication: LUNG NEOPLASM MALIGNANT
     Dosage: 150 MG/DAILY
     Route: 042
     Dates: start: 20081208, end: 20081208
  10. DEXAMETHASONE [Suspect]
     Indication: PROPHYLAXIS OF NAUSEA AND VOMITING
     Dosage: 8 AM/AM
     Route: 048
     Dates: start: 20081209, end: 20081209
  11. DEXAMETHASONE [Suspect]
     Indication: PROPHYLAXIS OF NAUSEA AND VOMITING
     Dosage: 8 MG/AM
     Route: 048
     Dates: start: 20081210, end: 20081210
  12. ENOXAPARIN SODIUM [Concomitant]
  13. PLAVIX [Concomitant]
  14. ASPIRIN [Concomitant]
  15. BISOPROLOL [Concomitant]
  16. FLECAINIDE ACETATE [Concomitant]
  17. SIMVASTATIN [Concomitant]

REACTIONS (5)
  - DYSPNOEA [None]
  - GASTRIC DISORDER [None]
  - NON-CARDIAC CHEST PAIN [None]
  - NON-SMALL CELL LUNG CANCER [None]
  - OESOPHAGEAL DISORDER [None]
